FAERS Safety Report 15274934 (Version 7)
Quarter: 2019Q3

REPORT INFORMATION
  Report Type: Report from Study
  Country: CA (occurrence: CA)
  Receive Date: 20180814
  Receipt Date: 20190920
  Transmission Date: 20191004
  Serious: Yes (Other)
  Sender: FDA-Public Use
  Company Number: CA-BRISTOL-MYERS SQUIBB COMPANY-BMS-2017-049995

PATIENT
  Age: 67 Year
  Sex: Female

DRUGS (1)
  1. ABATACEPT [Suspect]
     Active Substance: ABATACEPT
     Indication: RHEUMATOID ARTHRITIS
     Dosage: 750 MG, Q4WK
     Route: 042
     Dates: start: 20170201

REACTIONS (26)
  - Malaise [Unknown]
  - Cystitis [Unknown]
  - Skin lesion [Recovering/Resolving]
  - Condition aggravated [Unknown]
  - Blister [Not Recovered/Not Resolved]
  - Cough [Recovering/Resolving]
  - Contusion [Unknown]
  - Pain in extremity [Unknown]
  - Gait disturbance [Unknown]
  - Staphylococcal infection [Unknown]
  - Nausea [Recovering/Resolving]
  - Rheumatoid arthritis [Unknown]
  - Sensation of foreign body [Unknown]
  - Oropharyngeal pain [Recovering/Resolving]
  - Blood potassium decreased [Unknown]
  - Viral infection [Recovering/Resolving]
  - Ear infection [Unknown]
  - Wound complication [Recovering/Resolving]
  - Adverse event [None]
  - Pain [Not Recovered/Not Resolved]
  - Respiratory tract congestion [Unknown]
  - Musculoskeletal stiffness [Unknown]
  - Wound [Recovered/Resolved]
  - Back pain [Unknown]
  - Nasopharyngitis [Unknown]
  - Rash [Not Recovered/Not Resolved]

NARRATIVE: CASE EVENT DATE: 20170919
